FAERS Safety Report 18965902 (Version 1)
Quarter: 2021Q1

REPORT INFORMATION
  Report Type: Report from Study
  Country: GB (occurrence: GB)
  Receive Date: 20210303
  Receipt Date: 20210303
  Transmission Date: 20210420
  Serious: Yes (Other)
  Sender: FDA-Public Use
  Company Number: GB-GLAXOSMITHKLINE-GB2021045114

PATIENT
  Age: 73 Year
  Sex: Female

DRUGS (6)
  1. SELEGILINE [Concomitant]
     Active Substance: SELEGILINE
     Indication: PARKINSON^S DISEASE
     Dosage: 5 MG, BID, (AT 8AM AND 2PM)
     Route: 065
  2. APO?GO [Suspect]
     Active Substance: APOMORPHINE
     Indication: PARKINSON^S DISEASE
     Dosage: UNK, (3MG/HR)
     Route: 058
     Dates: start: 20200720
  3. SINEMET CR [Concomitant]
     Active Substance: CARBIDOPA\LEVODOPA
     Indication: PARKINSON^S DISEASE
     Dosage: 250 MG, QD
     Route: 065
  4. ROPINIROLE HYDROCHLORIDE. [Suspect]
     Active Substance: ROPINIROLE HYDROCHLORIDE
     Indication: PARKINSON^S DISEASE
     Dosage: UNK, (2MG IN THE MORNINGAND 8MG IN THE AFTERNOON )
     Route: 065
  5. APO?GO [Suspect]
     Active Substance: APOMORPHINE
     Indication: PARKINSON^S DISEASE
     Dosage: 2 MG, (AS NECESSARY)
     Route: 058
     Dates: start: 20200805, end: 20200805
  6. SINEMET [Concomitant]
     Active Substance: CARBIDOPA\LEVODOPA
     Indication: PARKINSON^S DISEASE
     Dosage: UNK, (250MG AT 7.30AM, 8.30PM AND 125MG AT 10.30AM, 1.30PM AND 4.30PM )
     Route: 065

REACTIONS (3)
  - Injection site bruising [Unknown]
  - Hallucination [Not Recovered/Not Resolved]
  - Fall [Unknown]
